FAERS Safety Report 6860351-8 (Version None)
Quarter: 2010Q3

REPORT INFORMATION
  Report Type: 
  Country: None (occurrence: None)
  Receive Date: 20100719
  Receipt Date: 20100719
  Transmission Date: 20110219
  Serious: Yes (Hospitalization)
  Sender: FDA-Public Use
  Company Number: None

PATIENT
  Age: 35 Year
  Sex: Female

DRUGS (1)
  1. MORPHINE SULFATE [Suspect]

REACTIONS (6)
  - INFUSION SITE PRURITUS [None]
  - INFUSION SITE RASH [None]
  - RASH PRURITIC [None]
  - RESPIRATORY DISTRESS [None]
  - SENSATION OF HEAVINESS [None]
  - TONGUE DISORDER [None]
